FAERS Safety Report 8547707-2 (Version None)
Quarter: 2012Q3

REPORT INFORMATION
  Report Type: 
  Country: None (occurrence: None)
  Receive Date: 20120727
  Receipt Date: 20120427
  Transmission Date: 20120928
  Serious: No
  Sender: FDA-Public Use
  Company Number: US-ASTRAZENECA-2012SE27877

PATIENT
  Age: 58 Year
  Sex: Female
  Weight: 95.7 kg

DRUGS (7)
  1. SEROQUEL [Suspect]
     Indication: SLEEP DISORDER
     Route: 048
  2. POTASSIUM CHLORIDE [Concomitant]
  3. BETA BLOCKERS [Concomitant]
  4. PERISTAL [Concomitant]
  5. FISH OIL [Concomitant]
  6. THYROID PILLS [Concomitant]
  7. BLOOD PRESSURE PILLS [Concomitant]

REACTIONS (3)
  - INTENTIONAL DRUG MISUSE [None]
  - HEADACHE [None]
  - INSOMNIA [None]
